FAERS Safety Report 8203769-3 (Version None)
Quarter: 2012Q1

REPORT INFORMATION
  Report Type: 
  Country: None (occurrence: None)
  Receive Date: 20120227
  Receipt Date: 20111128
  Transmission Date: 20120608
  Serious: No
  Sender: FDA-Public Use
  Company Number: 340393

PATIENT
  Age: 44 Year
  Sex: Female

DRUGS (2)
  1. GLIPIZIDE [Concomitant]
  2. VICTOZA [Suspect]
     Indication: TYPE 2 DIABETES MELLITUS
     Dosage: 0.6 MG, QD, SUBCUTANEOUS
     Route: 058
     Dates: start: 20110701

REACTIONS (3)
  - OEDEMA PERIPHERAL [None]
  - INCREASED UPPER AIRWAY SECRETION [None]
  - COUGH [None]
